FAERS Safety Report 8228915-7 (Version None)
Quarter: 2012Q1

REPORT INFORMATION
  Report Type: 
  Country: None (occurrence: None)
  Receive Date: 20120322
  Receipt Date: 20120312
  Transmission Date: 20120608
  Serious: Yes (Other)
  Sender: FDA-Public Use
  Company Number: US-BAYER-2011-029992

PATIENT
  Age: 31 Year
  Sex: Female
  Weight: 102.1 kg

DRUGS (8)
  1. SYNTHROID [Concomitant]
     Dosage: 0.05 MG, UNK
  2. GLUMETZA [Concomitant]
     Dosage: 500 MG, UNK
  3. HUMALOG [Concomitant]
     Indication: TYPE 2 DIABETES MELLITUS
     Dosage: 100 UNK, UNK
  4. DROSPIRENONE AND ETHINYL ESTRADIOL [Suspect]
     Indication: HYPERTRICHOSIS
     Dosage: UNK
     Dates: start: 20100501, end: 20101001
  5. LEVEMIR [Concomitant]
     Indication: TYPE 2 DIABETES MELLITUS
     Dosage: UNK
  6. DROSPIRENONE AND ETHINYL ESTRADIOL [Suspect]
     Indication: HIRSUTISM
  7. ASPIRIN [Concomitant]
     Dosage: 325 MG, UNK
  8. TAGAMET [Concomitant]
     Dosage: 300 MG, PRN

REACTIONS (4)
  - VISUAL IMPAIRMENT [None]
  - PRURITUS [None]
  - BLOOD CHOLESTEROL DECREASED [None]
  - DIARRHOEA [None]
